FAERS Safety Report 9228360 (Version 2)
Quarter: 2013Q2

REPORT INFORMATION
  Report Type: Report from Study
  Country: DE (occurrence: DE)
  Receive Date: 20130412
  Receipt Date: 20130611
  Transmission Date: 20140414
  Serious: Yes (Death, Other)
  Sender: FDA-Public Use
  Company Number: DE-ROCHE-1211407

PATIENT
  Sex: 0

DRUGS (2)
  1. ALTEPLASE [Suspect]
     Indication: ISCHAEMIC STROKE
     Route: 013
  2. HEPARIN [Suspect]
     Indication: PRODUCT USED FOR UNKNOWN INDICATION
     Route: 042

REACTIONS (14)
  - Death [Fatal]
  - Cerebral haemorrhage [Unknown]
  - Haemorrhagic cerebral infarction [Unknown]
  - Subarachnoid haemorrhage [Unknown]
  - Catheter site haemorrhage [Unknown]
  - Epistaxis [Unknown]
  - Pharyngeal haemorrhage [Unknown]
  - Gastrointestinal haemorrhage [Unknown]
  - Urethral haemorrhage [Unknown]
  - Haematuria [Unknown]
  - Conjunctival haemorrhage [Unknown]
  - Implant site haemorrhage [Unknown]
  - Vessel puncture site haemorrhage [Unknown]
  - Mouth haemorrhage [Unknown]
